FAERS Safety Report 19824558 (Version 1)
Quarter: 2021Q3

REPORT INFORMATION
  Report Type: Spontaneous
  Country: DE (occurrence: DE)
  Receive Date: 20210913
  Receipt Date: 20210913
  Transmission Date: 20211014
  Serious: Yes (Other)
  Sender: FDA-Public Use
  Company Number: DE-PFIZER INC-202101125479

PATIENT
  Sex: Male

DRUGS (1)
  1. CYTOTEC [Suspect]
     Active Substance: MISOPROSTOL
     Indication: LABOUR INDUCTION
     Dosage: 1 TABLET
     Route: 064
     Dates: start: 20120815, end: 20120816

REACTIONS (2)
  - Foetal distress syndrome [Not Recovered/Not Resolved]
  - Foetal exposure during delivery [Not Recovered/Not Resolved]

NARRATIVE: CASE EVENT DATE: 20120815
